FAERS Safety Report 23694428 (Version 2)
Quarter: 2024Q4

REPORT INFORMATION
  Report Type: Spontaneous
  Country: ES (occurrence: ES)
  Receive Date: 20240401
  Receipt Date: 20241120
  Transmission Date: 20250115
  Serious: Yes (Other)
  Sender: SANDOZ
  Company Number: ES-002147023-NVSC2022ES209937

PATIENT
  Age: 7 Year
  Sex: Male

DRUGS (25)
  1. ALEMTUZUMAB [Suspect]
     Active Substance: ALEMTUZUMAB
     Indication: Bone marrow conditioning regimen
     Dosage: UNK, REDUCED-INTENSITY CONDITIONING
     Route: 065
  2. BUDESONIDE [Suspect]
     Active Substance: BUDESONIDE
     Indication: Acute graft versus host disease
     Route: 048
  3. BUSULFAN [Suspect]
     Active Substance: BUSULFAN
     Indication: Bone marrow conditioning regimen
     Dosage: DURING SECOND PERIPHERAL BLOOD HSCT; DOSE-ADJUSTED
     Route: 065
  4. CYCLOSPORINE [Suspect]
     Active Substance: CYCLOSPORINE
     Indication: Prophylaxis against graft versus host disease
     Dosage: HLH-2004 PROTOCOL
     Route: 065
  5. CYCLOSPORINE [Suspect]
     Active Substance: CYCLOSPORINE
     Indication: Griscelli syndrome
     Route: 065
  6. CYCLOSPORINE [Suspect]
     Active Substance: CYCLOSPORINE
     Dosage: DURING SECOND PERIPHERAL BLOOD HSCT
     Route: 065
  7. CYCLOSPORINE [Suspect]
     Active Substance: CYCLOSPORINE
     Indication: Prophylaxis against graft versus host disease
     Dosage: UNK
     Route: 065
  8. CLOFARABINE [Suspect]
     Active Substance: CLOFARABINE
     Indication: Acute lymphocytic leukaemia
     Dosage: AS PER SHOP/ALL 2008 PROTOCOL
     Route: 065
  9. CYCLOPHOSPHAMIDE [Suspect]
     Active Substance: CYCLOPHOSPHAMIDE
     Indication: Bone marrow conditioning regimen
     Dosage: AS PER SHOP/ALL 2008 PROTOCOL
     Route: 065
  10. CYTARABINE [Suspect]
     Active Substance: CYTARABINE
     Indication: Acute lymphocytic leukaemia
     Dosage: AS PER SHOP/ALL 2008 PROTOCOL
     Route: 065
  11. DECADRON (DEXAMETHASONE SODIUM PHOSPHATE) [Suspect]
     Active Substance: DEXAMETHASONE SODIUM PHOSPHATE
     Indication: Griscelli syndrome
     Dosage: HLH-2004 PROTOCOL
     Route: 065
  12. ETOPOSIDE [Suspect]
     Active Substance: ETOPOSIDE
     Indication: Bone marrow conditioning regimen
     Dosage: AS PER SHOP/ALL 2008 PROTOCOL
     Route: 065
  13. ETOPOSIDE [Suspect]
     Active Substance: ETOPOSIDE
     Dosage: UNK
     Route: 065
  14. FLUDARABINE [Suspect]
     Active Substance: FLUDARABINE PHOSPHATE
     Indication: Bone marrow conditioning regimen
     Dosage: REDUCED-INTENSITY CONDITIONING
     Route: 065
  15. METHOTREXATE [Suspect]
     Active Substance: METHOTREXATE
     Indication: Prophylaxis against graft versus host disease
     Route: 065
  16. MYCOPHENOLATE MOFETIL [Suspect]
     Active Substance: MYCOPHENOLATE MOFETIL
     Indication: Prophylaxis against graft versus host disease
     Dosage: UNK
     Route: 065
  17. MELPHALAN [Suspect]
     Active Substance: MELPHALAN
     Indication: Bone marrow conditioning regimen
     Dosage: REDUCED-INTENSITY CONDITIONING
     Route: 065
  18. PRIVIGEN [Suspect]
     Active Substance: HUMAN IMMUNOGLOBULIN G
     Indication: Hypogammaglobulinaemia
     Dosage: FROM THE FIRST TRANSPLANTATION AT INCREASING DOSES THAT WENT FROM 0.27 TO 0.66 G/KG EVERY 4 WEEKS
     Route: 042
  19. PRIVIGEN [Suspect]
     Active Substance: HUMAN IMMUNOGLOBULIN G
     Indication: Prophylaxis
     Dosage: INCREASING DOSES THAT RANGED FROM 0.28 TO 0.43/KG
     Route: 042
  20. RITUXIMAB [Suspect]
     Active Substance: RITUXIMAB
     Indication: Bone marrow conditioning regimen
     Dosage: RECEIVED ON 2 OCCASIONS
     Route: 065
  21. SIROLIMUS [Suspect]
     Active Substance: SIROLIMUS
     Indication: Acute graft versus host disease
     Route: 065
  22. THIOTEPA [Suspect]
     Active Substance: THIOTEPA
     Indication: Bone marrow conditioning regimen
     Dosage: DURING SECOND PERIPHERAL BLOOD HSCT
     Route: 065
  23. COTRIMOXAZOLE [Concomitant]
     Active Substance: SULFAMETHOXAZOLE\TRIMETHOPRIM
     Dosage: DURING SECOND PERIPHERAL BLOOD HSCT
     Route: 065
  24. COTRIMOXAZOLE [Concomitant]
     Active Substance: SULFAMETHOXAZOLE\TRIMETHOPRIM
     Indication: Antifungal prophylaxis
     Dosage: UNK
     Route: 065
  25. RITUXIMAB [Concomitant]
     Active Substance: RITUXIMAB
     Indication: Epstein-Barr virus infection reactivation
     Dosage: UNK
     Route: 065

REACTIONS (7)
  - Hypogammaglobulinaemia [Recovered/Resolved]
  - Graft versus host disease in gastrointestinal tract [Unknown]
  - Graft versus host disease in skin [Unknown]
  - Graft versus host disease in liver [Unknown]
  - Acute graft versus host disease in skin [Recovered/Resolved]
  - Epstein-Barr virus infection reactivation [Unknown]
  - Product use in unapproved indication [Unknown]
